FAERS Safety Report 5961798-4 (Version None)
Quarter: 2008Q4

REPORT INFORMATION
  Report Type: 
  Country: None (occurrence: None)
  Receive Date: 20081121
  Receipt Date: 20081110
  Transmission Date: 20090506
  Serious: Yes (Other)
  Sender: FDA-Public Use
  Company Number: SV-ELI_LILLY_AND_COMPANY-SV200810005746

PATIENT
  Age: 19 Year
  Sex: Female

DRUGS (5)
  1. OLANZAPINE [Suspect]
     Indication: DEPRESSION
     Dosage: 10 MG, DAILY (1/D)
     Route: 048
  2. OLANZAPINE [Suspect]
     Dosage: UNK, UNKNOWN
     Route: 065
  3. OLANZAPINE [Suspect]
     Dosage: UNK, UNKNOWN
     Route: 065
  4. FLUOXETINE [Concomitant]
     Indication: DEPRESSION
     Dosage: UNK, UNKNOWN
     Route: 065
  5. QUETIAPINE FUMARATE [Concomitant]
     Dosage: UNK, UNKNOWN
     Route: 065

REACTIONS (6)
  - DEPRESSION [None]
  - INTENTIONAL SELF-INJURY [None]
  - SECONDARY HYPOTHYROIDISM [None]
  - SUICIDAL IDEATION [None]
  - VOMITING [None]
  - WEIGHT INCREASED [None]
